FAERS Safety Report 8790834 (Version 2)
Quarter: 2012Q4

REPORT INFORMATION
  Report Type: Spontaneous
  Country: ES (occurrence: None)
  Receive Date: 20120910
  Receipt Date: 20120927
  Transmission Date: 20130627
  Serious: No
  Sender: FDA-Public Use
  Company Number: 2012170376

PATIENT

DRUGS (1)
  1. FRAGMIN (DALTEPARIN SODIUM) SOLUTION FOR INJECTION [Suspect]
     Indication: PROPHYLAXIS OF ABORTION
     Route: 064
     Dates: start: 20120110, end: 20120911

REACTIONS (2)
  - Maternal drugs affecting foetus [None]
  - Premature baby [None]
